FAERS Safety Report 24135662 (Version 2)
Quarter: 2024Q3

REPORT INFORMATION
  Report Type: Spontaneous
  Country: DK (occurrence: DK)
  Receive Date: 20240725
  Receipt Date: 20240823
  Transmission Date: 20241016
  Serious: Yes (Hospitalization, Other)
  Sender: TEVA
  Company Number: None

PATIENT
  Sex: Male
  Weight: 5 kg

DRUGS (3)
  1. LAMOTRIGINE [Suspect]
     Active Substance: LAMOTRIGINE
     Indication: Epilepsy
     Dosage: AT BIRTH ON 20 MAR 2024 THE DOSE WAS GRADUALLY DECREASED OVER 3 DAYS FROM AN UNKNOWN DOSAGE TO 30...
     Route: 065
     Dates: start: 20130911
  2. LAMOTRIGINE [Suspect]
     Active Substance: LAMOTRIGINE
     Indication: Epilepsy
     Dosage: AT BIRTH ON 20 MAR 2024 THE DOSE WAS GRADUALLY DECREASED OVER 3 DAYS FROM AN UNKNOWN DOSAGE TO 30...
     Route: 065
     Dates: start: 20210211
  3. LAMOTRIGINE [Suspect]
     Active Substance: LAMOTRIGINE
     Indication: Epilepsy
     Dosage: AT BIRTH ON 20 MAR 2024 THE DOSE WAS GRADUALLY DECREASED OVER 3 DAYS FROM AN UNKNOWN DOSAGE TO 30...
     Route: 065
     Dates: start: 20230724

REACTIONS (4)
  - Faeces pale [Unknown]
  - Exposure via breast milk [Unknown]
  - Foetal exposure during pregnancy [Recovered/Resolved]
  - Neonatal cholestasis [Recovering/Resolving]

NARRATIVE: CASE EVENT DATE: 20230101
